FAERS Safety Report 8200333-7 (Version None)
Quarter: 2012Q1

REPORT INFORMATION
  Report Type: 
  Country: None (occurrence: None)
  Receive Date: 20120312
  Receipt Date: 20120307
  Transmission Date: 20120608
  Serious: Yes (Hospitalization)
  Sender: FDA-Public Use
  Company Number: FR-PFIZER INC-2011085199

PATIENT
  Age: 57 Year
  Sex: Male

DRUGS (5)
  1. ATORVASTATIN [Suspect]
     Indication: HYPERCHOLESTEROLAEMIA
     Dosage: 40 MG, 1X/DAY
     Route: 048
     Dates: start: 20090101
  2. PLAVIX [Suspect]
     Dosage: 75 MG, 1X/DAY
     Route: 048
     Dates: start: 20090101, end: 20110206
  3. ATORVASTATIN [Suspect]
     Dosage: 40 MG, 1X/DAY
     Dates: start: 20110218
  4. ASPIRIN [Suspect]
     Dosage: 75 MG, 1X/DAY
     Route: 048
     Dates: start: 20090101, end: 20110206
  5. ATORVASTATIN [Suspect]
     Dosage: 80 MG, 1X/DAY
     Dates: start: 20110207, end: 20110217

REACTIONS (4)
  - CEREBRAL HAEMATOMA [None]
  - ATAXIA [None]
  - MOTOR DYSFUNCTION [None]
  - HYPERTENSION [None]
